FAERS Safety Report 7844593-0 (Version None)
Quarter: 2011Q4

REPORT INFORMATION
  Report Type: 
  Country: None (occurrence: None)
  Receive Date: 20111025
  Receipt Date: 20111014
  Transmission Date: 20120403
  Serious: Yes (Other)
  Sender: FDA-Public Use
  Company Number: CA-JNJFOC-20111007914

PATIENT
  Sex: Female
  Weight: 98.9 kg

DRUGS (8)
  1. REMICADE [Suspect]
     Indication: RHEUMATOID ARTHRITIS
     Route: 042
     Dates: start: 20110323
  2. LEVOTHYROXINE SODIUM [Concomitant]
  3. CALCIUM CARBONATE [Concomitant]
  4. BOTOX [Concomitant]
     Route: 050
  5. VITAMIN D [Concomitant]
  6. TRAMADOL HYDROCHLORIDE AND ACETAMINOPHEN [Concomitant]
  7. PREDNISONE [Concomitant]
  8. APO-HYDROXYQUINE [Concomitant]

REACTIONS (1)
  - GALLBLADDER DISORDER [None]
